FAERS Safety Report 18286115 (Version 1)
Quarter: 2020Q3

REPORT INFORMATION
  Report Type: Spontaneous
  Country: US (occurrence: US)
  Receive Date: 20200919
  Receipt Date: 20200919
  Transmission Date: 20201103
  Serious: Yes (Other)
  Sender: FDA-Public Use
  Company Number: US-TEVA-2020-US-1828922

PATIENT
  Sex: Male

DRUGS (3)
  1. TRAMADOL. [Suspect]
     Active Substance: TRAMADOL
     Route: 065
  2. FENTANYL. [Suspect]
     Active Substance: FENTANYL
     Indication: PRODUCT USED FOR UNKNOWN INDICATION
     Route: 065
  3. MORPHINE [Suspect]
     Active Substance: MORPHINE
     Route: 065

REACTIONS (13)
  - Drug dependence [Unknown]
  - Amnesia [Unknown]
  - Suicide attempt [Unknown]
  - Personal relationship issue [Unknown]
  - Tremor [Unknown]
  - Memory impairment [Unknown]
  - Deafness [Unknown]
  - Depression [Unknown]
  - Overdose [Unknown]
  - Dysgraphia [Unknown]
  - Fine motor skill dysfunction [Unknown]
  - Foaming at mouth [Unknown]
  - Social avoidant behaviour [Unknown]
